FAERS Safety Report 20453298 (Version 1)
Quarter: 2022Q1

REPORT INFORMATION
  Report Type: Spontaneous
  Country: US (occurrence: None)
  Receive Date: 20220209
  Receipt Date: 20220209
  Transmission Date: 20220423
  Serious: No
  Sender: FDA-Public Use
  Company Number: None

PATIENT
  Sex: Female

DRUGS (1)
  1. HUMIRA [Suspect]
     Active Substance: ADALIMUMAB
     Indication: Rheumatoid arthritis
     Dosage: 40MG EVERY OTHER WEEK UNDER THE SKIN?
     Route: 058
     Dates: start: 201807, end: 202202

REACTIONS (3)
  - Pain in extremity [None]
  - Back pain [None]
  - Pain in extremity [None]
